FAERS Safety Report 21701856 (Version 1)
Quarter: 2022Q4

REPORT INFORMATION
  Report Type: Report from Study
  Country: ES (occurrence: ES)
  Receive Date: 20221208
  Receipt Date: 20221208
  Transmission Date: 20230113
  Serious: Yes (Other)
  Sender: FDA-Public Use
  Company Number: ES-AEMPS-1259825

PATIENT
  Age: 55 Year
  Sex: Male
  Weight: 73 kg

DRUGS (1)
  1. ADALIMUMAB [Suspect]
     Active Substance: ADALIMUMAB
     Indication: Psoriasis
     Dosage: 40 MG Q2W, 40 MG EVERY 2 WKS, SUBCUTANEOUS ROUTE
     Route: 058
     Dates: start: 20091110, end: 20220830

REACTIONS (2)
  - Laryngeal cancer [Recovering/Resolving]
  - Squamous cell carcinoma [Recovering/Resolving]

NARRATIVE: CASE EVENT DATE: 20220830
